FAERS Safety Report 4704115-X (Version None)
Quarter: 2005Q2

REPORT INFORMATION
  Report Type: 
  Country: None (occurrence: None)
  Receive Date: 20050630
  Receipt Date: 20050620
  Transmission Date: 20051028
  Serious: Yes (Hospitalization)
  Sender: FDA-Public Use
  Company Number: FR-SANOFI-SYNTHELABO-A02200501637

PATIENT
  Sex: Male

DRUGS (4)
  1. XATRAL [Suspect]
     Indication: DRUG USE FOR UNKNOWN INDICATION
     Route: 048
     Dates: start: 20050421, end: 20050518
  2. NIMOTOP [Suspect]
     Indication: DRUG USE FOR UNKNOWN INDICATION
     Route: 048
     Dates: start: 20050503, end: 20050512
  3. CLAFORAN [Suspect]
     Indication: MENINGITIS BACTERIAL
     Route: 051
     Dates: start: 20050418, end: 20050515
  4. FRAGMIN [Concomitant]
     Route: 058
     Dates: start: 20050421, end: 20050518

REACTIONS (3)
  - AGRANULOCYTOSIS [None]
  - NEUTROPHIL FUNCTION DISORDER [None]
  - RASH [None]
